FAERS Safety Report 6100169-7 (Version None)
Quarter: 2009Q1

REPORT INFORMATION
  Report Type: 
  Country: None (occurrence: None)
  Receive Date: 20090303
  Receipt Date: 20090219
  Transmission Date: 20090719
  Serious: Yes (Other)
  Sender: FDA-Public Use
  Company Number: CH-ELI_LILLY_AND_COMPANY-CH200902005631

PATIENT
  Sex: Male
  Weight: 61 kg

DRUGS (8)
  1. CIALIS [Suspect]
     Indication: ORGANIC ERECTILE DYSFUNCTION
     Dosage: UNK UNK, AS NEEDED
     Route: 048
     Dates: start: 20080301, end: 20090101
  2. VIAGRA /SCH/ [Concomitant]
     Indication: ORGANIC ERECTILE DYSFUNCTION
     Dosage: UNK UNK, AS NEEDED
     Route: 065
     Dates: start: 20080301, end: 20090101
  3. LEVITRA [Concomitant]
     Indication: ORGANIC ERECTILE DYSFUNCTION
     Dosage: UNK UNK, AS NEEDED
     Route: 048
     Dates: start: 20080301, end: 20090101
  4. HYDROCORTISONE 10MG TAB [Concomitant]
     Indication: ADRENOCORTICAL INSUFFICIENCY ACUTE
     Dosage: 15 MG, DAILY (1/D)
     Route: 048
     Dates: start: 19930101
  5. FLORINEF [Concomitant]
     Indication: ADRENOCORTICAL INSUFFICIENCY ACUTE
     Dosage: 0.05 MG, DAILY (1/D)
     Route: 048
     Dates: start: 19930101
  6. TESTOSTERONE [Concomitant]
     Indication: ADRENOCORTICAL INSUFFICIENCY ACUTE
     Dosage: 25 MG, UNK
     Route: 061
     Dates: start: 20040101
  7. SIMVASTATIN [Concomitant]
     Indication: HYPERLIPIDAEMIA
     Dosage: 40 MG, DAILY (1/D)
     Route: 048
     Dates: start: 20060101
  8. CALCIUM SANDOZ [Concomitant]
     Indication: OSTEOPOROSIS
     Dosage: UNK UNK,
     Route: 048
     Dates: start: 20040101

REACTIONS (2)
  - COORDINATION ABNORMAL [None]
  - GAIT DISTURBANCE [None]
